FAERS Safety Report 11440384 (Version 1)
Quarter: 2015Q3

REPORT INFORMATION
  Report Type: Spontaneous
  Country: US (occurrence: US)
  Receive Date: 20150901
  Receipt Date: 20150901
  Transmission Date: 20151125
  Serious: No
  Sender: FDA-Public Use
  Company Number: US-ROCHE-1144757

PATIENT
  Sex: Female

DRUGS (3)
  1. TELAPREVIR [Suspect]
     Active Substance: TELAPREVIR
     Indication: HEPATITIS C
     Route: 065
     Dates: start: 20120923
  2. RIBAVIRIN. [Suspect]
     Active Substance: RIBAVIRIN
     Indication: HEPATITIS C
     Route: 048
     Dates: start: 20120923
  3. PEGASYS [Suspect]
     Active Substance: PEGINTERFERON ALFA-2A
     Indication: HEPATITIS C
     Route: 058
     Dates: start: 20120923

REACTIONS (15)
  - Fatigue [Unknown]
  - Rash [Recovered/Resolved]
  - Formication [Unknown]
  - Feeling abnormal [Unknown]
  - Pain [Unknown]
  - Pyrexia [Unknown]
  - Chest discomfort [Unknown]
  - Feeling of body temperature change [Unknown]
  - Diarrhoea [Unknown]
  - Nausea [Unknown]
  - Restlessness [Unknown]
  - Drug dose omission [Unknown]
  - Withdrawal syndrome [Unknown]
  - Hypophagia [Unknown]
  - Vomiting [Unknown]
